FAERS Safety Report 19434120 (Version 2)
Quarter: 2021Q2

REPORT INFORMATION
  Report Type: Other
  Country: CN (occurrence: CN)
  Receive Date: 20210618
  Receipt Date: 20210623
  Transmission Date: 20210717
  Serious: Yes (Other)
  Sender: FDA-Public Use
  Company Number: CN-ROCHE-2849603

PATIENT

DRUGS (6)
  1. MYCOPHENOLATE MOFETIL. [Suspect]
     Active Substance: MYCOPHENOLATE MOFETIL
     Indication: GLOMERULONEPHRITIS MEMBRANOUS
     Route: 065
  2. CYCLOPHOSPHAMIDE. [Suspect]
     Active Substance: CYCLOPHOSPHAMIDE
     Indication: GLOMERULONEPHRITIS MEMBRANOUS
     Route: 065
  3. TACROLIMUS. [Suspect]
     Active Substance: TACROLIMUS
     Indication: GLOMERULONEPHRITIS MEMBRANOUS
     Route: 065
  4. CYCLOSPORINE. [Suspect]
     Active Substance: CYCLOSPORINE
     Indication: GLOMERULONEPHRITIS MEMBRANOUS
     Route: 065
  5. LEFLUNOMIDE. [Suspect]
     Active Substance: LEFLUNOMIDE
     Indication: GLOMERULONEPHRITIS MEMBRANOUS
     Route: 065
  6. RITUXIMAB. [Suspect]
     Active Substance: RITUXIMAB
     Indication: GLOMERULONEPHRITIS MEMBRANOUS
     Route: 041

REACTIONS (20)
  - Dyspnoea [Unknown]
  - Cerebral infarction [Unknown]
  - Nausea [Unknown]
  - Rash [Unknown]
  - Pruritus [Unknown]
  - Anaemia [Unknown]
  - Dizziness [Unknown]
  - Myalgia [Unknown]
  - Upper respiratory tract infection [Unknown]
  - Dysphoria [Unknown]
  - Pyrexia [Unknown]
  - Pneumonia [Unknown]
  - Loss of consciousness [Unknown]
  - Thrombocytopenia [Unknown]
  - Cough [Unknown]
  - Abdominal pain [Unknown]
  - Wheezing [Unknown]
  - Erythema [Unknown]
  - Rhinorrhoea [Unknown]
  - Diarrhoea [Unknown]
